FAERS Safety Report 9499403 (Version 1)
Quarter: 2013Q3

REPORT INFORMATION
  Report Type: Spontaneous
  Country: US (occurrence: None)
  Receive Date: 20130903
  Receipt Date: 20130903
  Transmission Date: 20140515
  Serious: Yes (Hospitalization)
  Sender: FDA-Public Use
  Company Number: None

PATIENT
  Sex: Female

DRUGS (4)
  1. METHOTREXATE [Suspect]
     Indication: RHEUMATOID ARTHRITIS
     Route: 048
  2. PREDNISONE [Concomitant]
  3. SILDENAFIL [Concomitant]
  4. NEURONTIN [Concomitant]

REACTIONS (4)
  - Necrotising fasciitis [None]
  - Immunodeficiency [None]
  - Toe amputation [None]
  - Laceration [None]
